FAERS Safety Report 9134935 (Version 1)
Quarter: 2013Q1

REPORT INFORMATION
  Report Type: Spontaneous
  Country: US (occurrence: US)
  Receive Date: 20130304
  Receipt Date: 20130304
  Transmission Date: 20140127
  Serious: Yes (Other)
  Sender: FDA-Public Use
  Company Number: US-ENDO PHARMACEUTICALS INC.-ENDC20120057

PATIENT
  Sex: Female

DRUGS (3)
  1. ENDOCET [Suspect]
     Indication: PRODUCT USED FOR UNKNOWN INDICATION
     Dosage: 5/325 MG
     Route: 048
     Dates: start: 2012
  2. CANNABIS SATIVA SUBSP. INDICA TOP [Suspect]
     Indication: DRUG ABUSE
     Route: 065
     Dates: start: 2012
  3. OXYCODONE/ACETAMINOPHEN [Concomitant]
     Indication: PRODUCT USED FOR UNKNOWN INDICATION
     Dosage: 5/325 MG
     Route: 048
     Dates: end: 2012

REACTIONS (4)
  - Drug abuse [Unknown]
  - Drug screen negative [Unknown]
  - Drug screen positive [Unknown]
  - Drug ineffective [Not Recovered/Not Resolved]
